FAERS Safety Report 7767351-4 (Version None)
Quarter: 2011Q3

REPORT INFORMATION
  Report Type: 
  Country: None (occurrence: None)
  Receive Date: 20110922
  Receipt Date: 20110912
  Transmission Date: 20111222
  Serious: Yes (Hospitalization)
  Sender: FDA-Public Use
  Company Number: JP-SHIRE-ALL1-2011-03487

PATIENT
  Sex: Male

DRUGS (6)
  1. TACROLIMUS [Suspect]
     Indication: PROPHYLAXIS AGAINST TRANSPLANT REJECTION
     Dosage: 3.5 MG, UNKNOWN
     Route: 048
     Dates: start: 20100525
  2. TEGRETOL [Concomitant]
     Indication: ANALGESIC THERAPY
     Dosage: 200 MG, 1X/DAY:QD
     Route: 048
     Dates: start: 20040531
  3. ALENDRONATE SODIUM [Concomitant]
     Indication: PRODUCT USED FOR UNKNOWN INDICATION
     Dosage: 5 MG, UNKNOWN
     Route: 048
     Dates: start: 20110210
  4. AGALSIDASE ALFA [Suspect]
     Indication: FABRY'S DISEASE
     Dosage: 10.5 MG, 1X/2WKS
     Route: 041
     Dates: start: 20100909
  5. CELLCEPT [Concomitant]
     Indication: PROPHYLAXIS AGAINST TRANSPLANT REJECTION
     Dosage: 1000 MG, 1X/DAY:QD
     Route: 048
     Dates: start: 20041010
  6. MICARDIS [Concomitant]
     Indication: NEPHROPATHY
     Dosage: 20 MG, 1X/DAY:QD
     Route: 048
     Dates: start: 20060720

REACTIONS (2)
  - NUCLEAR MAGNETIC RESONANCE IMAGING BRAIN ABNORMAL [None]
  - HERPES ZOSTER [None]
